FAERS Safety Report 8457724-9 (Version None)
Quarter: 2012Q2

REPORT INFORMATION
  Report Type: 
  Country: None (occurrence: None)
  Receive Date: 20120618
  Receipt Date: 20120618
  Transmission Date: 20120825
  Serious: Yes (Life-Threatening, Other)
  Sender: FDA-Public Use
  Company Number: None

PATIENT
  Age: 52 Year
  Sex: Male
  Weight: 85.2762 kg

DRUGS (5)
  1. ESCITALOPRAM [Concomitant]
  2. CLONAZEPAM [Concomitant]
  3. LYRICA [Suspect]
     Indication: BACK PAIN
     Dosage: 75 MG BID PO
     Route: 048
     Dates: start: 20120501, end: 20120617
  4. LAMOTRIGINE [Concomitant]
  5. TEMAZEPAM [Concomitant]

REACTIONS (5)
  - HYPERTENSION [None]
  - FEAR [None]
  - AUTONOMIC FAILURE SYNDROME [None]
  - HEADACHE [None]
  - HEART RATE INCREASED [None]
